FAERS Safety Report 4412964-0 (Version None)
Quarter: 2004Q3

REPORT INFORMATION
  Report Type: 
  Country: None (occurrence: None)
  Receive Date: 20040802
  Receipt Date: 20031208
  Transmission Date: 20050211
  Serious: No
  Sender: FDA-Public Use
  Company Number: US-GLAXOSMITHKLINE-A0442358A

PATIENT
  Age: 8 Year
  Sex: Female

DRUGS (2)
  1. ZANTAC [Suspect]
     Dosage: 15MGML TWICE PER DAY
     Route: 048
     Dates: start: 20031118, end: 20031207
  2. NONE [Concomitant]

REACTIONS (1)
  - VISION BLURRED [None]
